APPROVED DRUG PRODUCT: E-Z SCRUB
Active Ingredient: HEXACHLOROPHENE
Strength: 450MG
Dosage Form/Route: SPONGE;TOPICAL
Application: N017452 | Product #001
Applicant: BECTON DICKINSON AND CO
Approved: Approved Prior to Jan 1, 1982 | RLD: No | RS: No | Type: DISCN